FAERS Safety Report 18273966 (Version 1)
Quarter: 2020Q3

REPORT INFORMATION
  Report Type: Report from Study
  Country: US (occurrence: US)
  Receive Date: 20200916
  Receipt Date: 20200916
  Transmission Date: 20201103
  Serious: No
  Sender: FDA-Public Use
  Company Number: US-IPSEN BIOPHARMACEUTICALS, INC.-2018-15815

PATIENT
  Age: 6 Year
  Sex: Male
  Weight: 20.5 kg

DRUGS (3)
  1. DYSPORT [Suspect]
     Active Substance: ABOBOTULINUMTOXINA
     Indication: MUSCLE SPASTICITY
  2. DYSPORT [Suspect]
     Active Substance: ABOBOTULINUMTOXINA
     Indication: OFF LABEL USE
  3. DYSPORT [Suspect]
     Active Substance: ABOBOTULINUMTOXINA
     Indication: MUSCLE SPASTICITY
     Dosage: RIGHT LOWER EXTREMITY MEDIAL HAMSTRING AND MEDIAL GASTRO (260 UNITS)
     Route: 030
     Dates: start: 20180430, end: 20180430

REACTIONS (2)
  - Off label use [Unknown]
  - Fibula fracture [Recovered/Resolved]

NARRATIVE: CASE EVENT DATE: 20180430
